FAERS Safety Report 13585536 (Version 1)
Quarter: 2017Q2

REPORT INFORMATION
  Report Type: Spontaneous
  Country: US (occurrence: US)
  Receive Date: 20170526
  Receipt Date: 20170526
  Transmission Date: 20170830
  Serious: Yes (Hospitalization)
  Sender: FDA-Public Use
  Company Number: US-LPDUSPRD-20170667

PATIENT
  Age: 48 Year
  Sex: Male

DRUGS (7)
  1. CEFTAROLINE [Concomitant]
     Active Substance: CEFTAROLINE
     Dosage: DOSE UNKNOWN
     Route: 065
  2. LEVOFLOXIN [Concomitant]
     Active Substance: LEVOFLOXACIN
     Dosage: DOSE UNKNOWN
     Route: 065
  3. VANCOMYCIN [Concomitant]
     Active Substance: VANCOMYCIN
     Dosage: DOSE UNKNOWN
     Route: 065
  4. RIFAMPIN. [Concomitant]
     Active Substance: RIFAMPIN
     Dosage: DOSE UNKNOWN
     Route: 065
  5. MOXIFLOXACIN. [Concomitant]
     Active Substance: MOXIFLOXACIN
     Dosage: DOSE UNKNOWN
     Route: 065
  6. DEXAMETHASONE. [Suspect]
     Active Substance: DEXAMETHASONE
     Dosage: 10MG BID
     Route: 048
  7. DEXAMETHASONE SODIUM PHOSPHATE INJECTION, USP (4901-25) [Suspect]
     Active Substance: DEXAMETHASONE SODIUM PHOSPHATE
     Dosage: 10MG
     Route: 042

REACTIONS (2)
  - Steroid withdrawal syndrome [Unknown]
  - Vasculitis [Unknown]
